FAERS Safety Report 6185021-3 (Version None)
Quarter: 2009Q2

REPORT INFORMATION
  Report Type: 
  Country: None (occurrence: None)
  Receive Date: 20090511
  Receipt Date: 20090414
  Transmission Date: 20091009
  Serious: No
  Sender: FDA-Public Use
  Company Number: A0778722A

PATIENT
  Age: 52 Year
  Sex: Male

DRUGS (5)
  1. COREG CR [Suspect]
     Indication: HYPERTENSION
     Dosage: 20MG PER DAY
     Route: 048
     Dates: start: 20090403
  2. RANITIDINE [Concomitant]
  3. SINGULAIR [Concomitant]
  4. PENICILLIN G POTASSIUM [Concomitant]
  5. IPRATROPIUM BROMIDE [Concomitant]

REACTIONS (1)
  - DRUG SCREEN FALSE POSITIVE [None]
